FAERS Safety Report 19309458 (Version 1)
Quarter: 2021Q2

REPORT INFORMATION
  Report Type: Spontaneous
  Country: CA (occurrence: CA)
  Receive Date: 20210526
  Receipt Date: 20210526
  Transmission Date: 20210717
  Serious: Yes (Other)
  Sender: FDA-Public Use
  Company Number: CA-BAXTER-2021BAX012709

PATIENT
  Age: 32 Year
  Sex: Male

DRUGS (3)
  1. VANCOMYCIN INJECTION USP IN 5% DEXTROSE [Suspect]
     Active Substance: VANCOMYCIN
     Indication: GROIN ABSCESS
     Dosage: THREE INFUSIONS
     Route: 042
  2. RIZATRIPTAN. [Concomitant]
     Active Substance: RIZATRIPTAN
     Indication: MIGRAINE
     Route: 065
  3. METHYLPHENIDATE. [Concomitant]
     Active Substance: METHYLPHENIDATE
     Indication: ATTENTION DEFICIT HYPERACTIVITY DISORDER
     Route: 065

REACTIONS (1)
  - Kounis syndrome [Recovering/Resolving]
